FAERS Safety Report 9701873 (Version 2)
Quarter: 2013Q4

REPORT INFORMATION
  Report Type: Spontaneous
  Country: CA (occurrence: CA)
  Receive Date: 20131121
  Receipt Date: 20131218
  Transmission Date: 20140711
  Serious: Yes (Disabling, Other)
  Sender: FDA-Public Use
  Company Number: CA-INCYTE CORPORATION-2013IN002698

PATIENT
  Age: 61 Year
  Sex: Female

DRUGS (6)
  1. JAKAVI [Suspect]
     Indication: MYELOFIBROSIS
     Dosage: 20 MG, BID
     Route: 048
     Dates: start: 20120705, end: 20130601
  2. ASA [Concomitant]
  3. DIAZEPAM [Concomitant]
  4. ESTROGEL [Concomitant]
  5. CELEBREX [Concomitant]
  6. CYMBALTA [Concomitant]

REACTIONS (2)
  - Post herpetic neuralgia [Recovered/Resolved]
  - Herpes zoster [Recovered/Resolved]
